FAERS Safety Report 7578546-7 (Version None)
Quarter: 2011Q2

REPORT INFORMATION
  Report Type: 
  Country: None (occurrence: None)
  Receive Date: 20110622
  Receipt Date: 20110617
  Transmission Date: 20111010
  Serious: No
  Sender: FDA-Public Use
  Company Number: B0727200A

PATIENT
  Age: 52 Year
  Sex: Female

DRUGS (3)
  1. PROPRANOLOL HYDROCHLORIDE [Suspect]
     Indication: HYPERTENSION
     Dosage: 40 MG/TWICE PER DAY
  2. ADRENALINE (FORMULATION UNKNOWN) (EPINEPRHINE) [Suspect]
  3. LIGNOCAINE HYDROCHLORIDE [Concomitant]

REACTIONS (3)
  - HYPERTENSIVE CRISIS [None]
  - CARDIAC ARREST [None]
  - DRUG INTERACTION [None]
